FAERS Safety Report 9445087 (Version 1)
Quarter: 2013Q3

REPORT INFORMATION
  Report Type: Spontaneous
  Country: KR (occurrence: KR)
  Receive Date: 20130807
  Receipt Date: 20130807
  Transmission Date: 20140515
  Serious: Yes (Other)
  Sender: FDA-Public Use
  Company Number: KR-WATSON-2013-13407

PATIENT
  Age: 65 Year
  Sex: Male

DRUGS (1)
  1. RAPAFLO (WATSON LABORATORIES) [Suspect]
     Indication: BENIGN PROSTATIC HYPERPLASIA
     Dosage: 8 MG, UNKNOWN
     Route: 048
     Dates: start: 20091102, end: 20091202

REACTIONS (1)
  - Prostate cancer stage 0 [Unknown]
